FAERS Safety Report 8102606-5 (Version None)
Quarter: 2012Q1

REPORT INFORMATION
  Report Type: 
  Country: None (occurrence: None)
  Receive Date: 20120201
  Receipt Date: 20120124
  Transmission Date: 20120608
  Serious: Yes (Hospitalization)
  Sender: FDA-Public Use
  Company Number: US-US-EMD SERONO, INC.-7108984

PATIENT
  Sex: Female

DRUGS (2)
  1. UNSPECIFIED STOOL SOFTENER [Concomitant]
  2. REBIF [Suspect]
     Indication: PRODUCT USED FOR UNKNOWN INDICATION
     Route: 058
     Dates: start: 20111130

REACTIONS (3)
  - DEHYDRATION [None]
  - RESTLESSNESS [None]
  - VOMITING [None]
